FAERS Safety Report 10677340 (Version 3)
Quarter: 2015Q1

REPORT INFORMATION
  Report Type: Spontaneous
  Country: CA (occurrence: CA)
  Receive Date: 20141226
  Receipt Date: 20150130
  Transmission Date: 20150720
  Serious: Yes (Other)
  Sender: FDA-Public Use
  Company Number: CHPA2014CA016689

PATIENT
  Age: 59 Year
  Sex: Female

DRUGS (12)
  1. ACETYLSALICYLIC ACID [Suspect]
     Active Substance: ASPIRIN
     Indication: ISCHAEMIC HEART DISEASE PROPHYLAXIS
     Dosage: 81 MG, QD
     Route: 048
  2. ATORVASTATIN [Concomitant]
     Active Substance: ATORVASTATIN
     Indication: CARDIAC DISORDER
     Dosage: 40 MG, QD
     Route: 065
  3. BRILINTA [Concomitant]
     Active Substance: TICAGRELOR
     Indication: THROMBOSIS PROPHYLAXIS
     Dosage: 90 MG, QD
     Route: 065
     Dates: start: 201411
  4. HABITROL [Suspect]
     Active Substance: NICOTINE
     Indication: SMOKING CESSATION THERAPY
     Dosage: 1 DF, QD
     Route: 062
     Dates: start: 20141211
  5. APO METOPROLOL [Concomitant]
     Indication: CARDIAC DISORDER
     Dosage: 25 MG, BID
     Route: 065
  6. DIVALPROEX SODIUM. [Concomitant]
     Active Substance: DIVALPROEX SODIUM
     Indication: SEIZURE
     Dosage: 250 MG, QD
     Route: 065
  7. VALSARTAN. [Concomitant]
     Active Substance: VALSARTAN
     Indication: CARDIAC DISORDER
     Dosage: 160 MG, QD
     Route: 048
  8. CARBAMAZEPINE. [Concomitant]
     Active Substance: CARBAMAZEPINE
     Indication: SEIZURE
     Dosage: 200 MG, QD
     Route: 065
  9. APO GLYBURIDE [Concomitant]
     Indication: DIABETES MELLITUS
     Dosage: 2 DF, A DAY
     Route: 048
  10. APO METFORMIN [Concomitant]
     Indication: DIABETES MELLITUS
     Dosage: 4 DF, A DAY
     Route: 048
  11. FENOFIBRATE. [Concomitant]
     Active Substance: FENOFIBRATE
     Indication: PRODUCT USED FOR UNKNOWN INDICATION
     Dosage: 160 MG, QD
     Route: 065
  12. TRADJENTA [Concomitant]
     Active Substance: LINAGLIPTIN
     Indication: DIABETES MELLITUS
     Dosage: 5 MG, QD
     Route: 065
     Dates: start: 2013

REACTIONS (8)
  - Wrong technique in drug usage process [Unknown]
  - Application site bruise [Not Recovered/Not Resolved]
  - Carotid artery occlusion [Recovered/Resolved]
  - Diabetic neuropathy [Not Recovered/Not Resolved]
  - Application site swelling [Not Recovered/Not Resolved]
  - Application site erythema [Not Recovered/Not Resolved]
  - Pain in extremity [Not Recovered/Not Resolved]
  - Drug ineffective [Unknown]

NARRATIVE: CASE EVENT DATE: 20141211
